FAERS Safety Report 20912158 (Version 1)
Quarter: 2022Q2

REPORT INFORMATION
  Report Type: Spontaneous
  Country: US (occurrence: None)
  Receive Date: 20220603
  Receipt Date: 20220603
  Transmission Date: 20220720
  Serious: Yes (Life-Threatening, Other)
  Sender: FDA-Public Use
  Company Number: 2022A204813

PATIENT
  Sex: Female

DRUGS (1)
  1. TAGRISSO [Suspect]
     Active Substance: OSIMERTINIB
     Route: 048

REACTIONS (15)
  - Pruritus [Unknown]
  - Neoplasm malignant [Unknown]
  - Tinea infection [Recovered/Resolved]
  - Pain [Unknown]
  - Haemorrhage [Recovered/Resolved]
  - Skin discomfort [Unknown]
  - Joint swelling [Unknown]
  - Skin disorder [Unknown]
  - Ocular discomfort [Unknown]
  - Chronic obstructive pulmonary disease [Unknown]
  - Feeling abnormal [Unknown]
  - Discomfort [Unknown]
  - Dry skin [Unknown]
  - Skin fissures [Unknown]
  - Rash papular [Unknown]
